FAERS Safety Report 17702727 (Version 1)
Quarter: 2020Q2

REPORT INFORMATION
  Report Type: Report from Study
  Country: GB (occurrence: GB)
  Receive Date: 20200424
  Receipt Date: 20200424
  Transmission Date: 20200714
  Serious: Yes (Death, Hospitalization)
  Sender: FDA-Public Use
  Company Number: GB-CELLTRION INC.-2020GB021847

PATIENT

DRUGS (1)
  1. TRUXIMA [Suspect]
     Active Substance: RITUXIMAB-ABBS
     Indication: DIFFUSE LARGE B-CELL LYMPHOMA
     Dosage: LAST DOSE
     Dates: start: 20190402, end: 20190402

REACTIONS (6)
  - Agitation [Not Recovered/Not Resolved]
  - Gastrointestinal haemorrhage [Fatal]
  - Loss of consciousness [Not Recovered/Not Resolved]
  - Fatigue [Not Recovered/Not Resolved]
  - Hypoxia [Not Recovered/Not Resolved]
  - Diffuse large B-cell lymphoma recurrent [Fatal]

NARRATIVE: CASE EVENT DATE: 20191213
